FAERS Safety Report 6446313-3 (Version None)
Quarter: 2009Q4

REPORT INFORMATION
  Report Type: 
  Country: None (occurrence: None)
  Receive Date: 20091119
  Receipt Date: 20091118
  Transmission Date: 20100525
  Serious: Yes (Life-Threatening, Hospitalization)
  Sender: FDA-Public Use
  Company Number: IT-WYE-G04814909

PATIENT
  Sex: Male
  Weight: 86 kg

DRUGS (5)
  1. TORISEL [Suspect]
     Indication: ACUTE MYELOID LEUKAEMIA
     Route: 042
     Dates: start: 20091023, end: 20091023
  2. PLASIL [Concomitant]
     Indication: NAUSEA
     Route: 042
     Dates: start: 20091026, end: 20091031
  3. RAMIPRIL [Concomitant]
     Indication: CARDIAC DISORDER
     Route: 048
     Dates: start: 20091019
  4. CLOFARABINE [Suspect]
     Indication: ACUTE MYELOID LEUKAEMIA
     Route: 042
     Dates: start: 20091023, end: 20091027
  5. LANSOX [Concomitant]
     Indication: GASTRIC DISORDER
     Route: 048
     Dates: start: 20091001

REACTIONS (3)
  - FEBRILE NEUTROPENIA [None]
  - PNEUMONITIS [None]
  - PSEUDOMONAL SEPSIS [None]
